FAERS Safety Report 5847745-4 (Version None)
Quarter: 2008Q3

REPORT INFORMATION
  Report Type: 
  Country: None (occurrence: None)
  Receive Date: 20080814
  Receipt Date: 20080814
  Transmission Date: 20090109
  Serious: Yes (Other)
  Sender: FDA-Public Use
  Company Number: None

PATIENT
  Sex: Male

DRUGS (2)
  1. RISPERIDONE [Suspect]
     Indication: ABNORMAL BEHAVIOUR
     Dosage: 0.25MG TAB AM + PM PO  0.25 MG 1/2 TAB BEDTIME
     Route: 048
  2. RISPERIDONE [Suspect]
     Indication: AUTISM
     Dosage: 0.25MG TAB AM + PM PO  0.25 MG 1/2 TAB BEDTIME
     Route: 048

REACTIONS (9)
  - ABNORMAL BEHAVIOUR [None]
  - AFFECT LABILITY [None]
  - DISTURBANCE IN SOCIAL BEHAVIOUR [None]
  - INCONTINENCE [None]
  - INCORRECT DOSE ADMINISTERED [None]
  - PHARMACEUTICAL PRODUCT COMPLAINT [None]
  - SPEECH DISORDER [None]
  - STARING [None]
  - WRONG TECHNIQUE IN DRUG USAGE PROCESS [None]
